FAERS Safety Report 19593202 (Version 1)
Quarter: 2021Q3

REPORT INFORMATION
  Report Type: Spontaneous
  Country: FR (occurrence: FR)
  Receive Date: 20210722
  Receipt Date: 20210722
  Transmission Date: 20211014
  Serious: Yes (Death)
  Sender: FDA-Public Use
  Company Number: NVSC2021FR162798

PATIENT
  Age: 52 Year
  Sex: Female

DRUGS (4)
  1. PULMICORT TURBUHALER [Concomitant]
     Active Substance: BUDESONIDE
     Indication: ASTHMA
     Dosage: 400 UG (400 ?G/ J)
     Route: 055
     Dates: end: 20210613
  2. AMOXICILLINE [Suspect]
     Active Substance: AMOXICILLIN
     Indication: PANCREATITIS
     Dosage: 1 G (PRISE UNIQUE)
     Route: 041
     Dates: start: 20210613, end: 20210613
  3. ZOLOFT [Concomitant]
     Active Substance: SERTRALINE HYDROCHLORIDE
     Indication: DEPRESSION
     Dosage: 50 MG (50 MG / J)
     Route: 048
     Dates: end: 20210613
  4. ULTIBRO BREEZHALER [Suspect]
     Active Substance: GLYCOPYRRONIUM\INDACATEROL
     Indication: PRODUCT USED FOR UNKNOWN INDICATION
     Dosage: 1 DF (1 DF/ JOUR, 85 MICROGRAMMES/43 MICROGRAMMES, POUDRE POUR INHALATION EN G?LULE)
     Route: 055
     Dates: end: 20210613

REACTIONS (2)
  - Anaphylactic shock [Fatal]
  - Cardio-respiratory arrest [Fatal]

NARRATIVE: CASE EVENT DATE: 20210613
